FAERS Safety Report 24164218 (Version 2)
Quarter: 2025Q1

REPORT INFORMATION
  Report Type: Report from Study
  Country: GB (occurrence: GB)
  Receive Date: 20240801
  Receipt Date: 20250116
  Transmission Date: 20250409
  Serious: Yes (Other)
  Sender: NOVARTIS
  Company Number: GB-002147023-NVSC2023GB140273

PATIENT
  Sex: Male

DRUGS (3)
  1. MAYZENT [Suspect]
     Active Substance: SIPONIMOD
     Indication: Secondary progressive multiple sclerosis
     Dosage: UNK, QD
     Route: 048
     Dates: start: 20230614
  2. MAYZENT [Suspect]
     Active Substance: SIPONIMOD
     Route: 065
  3. MAYZENT [Suspect]
     Active Substance: SIPONIMOD
     Dosage: UNK, QD
     Route: 048

REACTIONS (13)
  - Lower respiratory tract infection [Unknown]
  - Dyspnoea [Unknown]
  - Skin lesion [Recovered/Resolved]
  - Fatigue [Recovering/Resolving]
  - Limb discomfort [Unknown]
  - Vision blurred [Unknown]
  - Asthenia [Unknown]
  - Blood pressure systolic increased [Unknown]
  - Melanocytic naevus [Not Recovered/Not Resolved]
  - Fall [Unknown]
  - Limb injury [Unknown]
  - Skin lesion [Not Recovered/Not Resolved]
  - Haemorrhage [Unknown]
